FAERS Safety Report 22659250 (Version 2)
Quarter: 2024Q1

REPORT INFORMATION
  Report Type: Other
  Country: None (occurrence: US)
  Receive Date: 20230630
  Receipt Date: 20240106
  Transmission Date: 20240410
  Serious: Yes (Hospitalization)
  Sender: FDA-Public Use
  Company Number: US-WES Pharma Inc-2143274

PATIENT
  Age: 53 Year
  Sex: Female

DRUGS (1)
  1. OXYCODONE HYDROCHLORIDE [Suspect]
     Active Substance: OXYCODONE HYDROCHLORIDE
     Indication: Pain
     Route: 065

REACTIONS (5)
  - Mental status changes [Recovering/Resolving]
  - Drug withdrawal syndrome [Unknown]
  - Nausea [Unknown]
  - Chills [Unknown]
  - Overdose [Unknown]
